FAERS Safety Report 15919717 (Version 1)
Quarter: 2019Q1

REPORT INFORMATION
  Report Type: Spontaneous
  Country: US (occurrence: US)
  Receive Date: 20190205
  Receipt Date: 20190205
  Transmission Date: 20190417
  Serious: No
  Sender: FDA-Public Use
  Company Number: US-ROCHE-2111108

PATIENT
  Age: 15 Year
  Sex: Female
  Weight: 52.66 kg

DRUGS (5)
  1. CETIRIZINE HCL [Concomitant]
     Active Substance: CETIRIZINE HYDROCHLORIDE
     Dosage: ONGOING: YES
     Route: 048
     Dates: start: 20180104
  2. XOLAIR [Suspect]
     Active Substance: OMALIZUMAB
     Indication: VASCULITIS NECROTISING
     Dosage: ONGOING: NO
     Route: 058
     Dates: start: 20180117, end: 20180413
  3. XOLAIR [Suspect]
     Active Substance: OMALIZUMAB
     Route: 058
     Dates: start: 20180104
  4. AZATHIOPRINE. [Concomitant]
     Active Substance: AZATHIOPRINE
     Dosage: ONGOING: YES
     Route: 048
     Dates: start: 20180104
  5. EPINEPHRINE. [Concomitant]
     Active Substance: EPINEPHRINE
     Dosage: ONGOING: YES
     Route: 065
     Dates: start: 20180104

REACTIONS (1)
  - Drug hypersensitivity [Recovered/Resolved]

NARRATIVE: CASE EVENT DATE: 20180413
